FAERS Safety Report 6325947-0 (Version None)
Quarter: 2009Q3

REPORT INFORMATION
  Report Type: 
  Country: None (occurrence: None)
  Receive Date: 20090820
  Receipt Date: 20090810
  Transmission Date: 20100115
  Serious: Yes (Other)
  Sender: FDA-Public Use
  Company Number: GXKR2009GB08999

PATIENT
  Sex: Female

DRUGS (1)
  1. PHENOXYMETHYLPENICILLIN (NGX) (PHENOXYMETHYLPENICILLIN BENZATHINE) [Suspect]
     Dosage: 1 DF, ONCE/SINGLE

REACTIONS (1)
  - PSYCHOMOTOR HYPERACTIVITY [None]
